FAERS Safety Report 9991243 (Version 1)
Quarter: 2014Q1

REPORT INFORMATION
  Report Type: Report from Study
  Country: US (occurrence: US)
  Receive Date: 20140310
  Receipt Date: 20140310
  Transmission Date: 20141002
  Serious: No
  Sender: FDA-Public Use
  Company Number: US-ABBVIE-13P-163-1133538-00

PATIENT
  Age: 63 Year
  Sex: Female
  Weight: 60.84 kg

DRUGS (18)
  1. HUMIRA [Suspect]
     Indication: RHEUMATOID ARTHRITIS
     Dates: start: 20130726
  2. DEXILENT [Concomitant]
     Indication: GASTROOESOPHAGEAL REFLUX DISEASE
  3. LEVOTHYROXINE [Concomitant]
     Indication: HYPOTHYROIDISM
  4. HYDROXYCHLOROQUINE [Concomitant]
     Indication: RHEUMATOID ARTHRITIS
  5. PREMARIN [Concomitant]
     Indication: HORMONE REPLACEMENT THERAPY
  6. ATARAX [Concomitant]
     Indication: DIZZINESS
  7. AMBIEN CR [Concomitant]
     Indication: SLEEP DISORDER THERAPY
  8. SINGULAIR [Concomitant]
     Indication: PRODUCT USED FOR UNKNOWN INDICATION
  9. ASPIRIN [Concomitant]
     Indication: PRODUCT USED FOR UNKNOWN INDICATION
  10. DURAGESIC [Concomitant]
     Indication: RHEUMATOID ARTHRITIS
  11. DURAGESIC [Concomitant]
     Indication: OSTEOARTHRITIS
  12. LYRICA [Concomitant]
     Indication: NEUROPATHY PERIPHERAL
  13. SAVELLA [Concomitant]
     Indication: ANXIETY
  14. MULTIVITAMIN [Concomitant]
     Indication: PRODUCT USED FOR UNKNOWN INDICATION
  15. IRON [Concomitant]
     Indication: PRODUCT USED FOR UNKNOWN INDICATION
  16. GI COCKTAIL: MYLANTA, LIDOCAINE, DONNATAL [Concomitant]
     Indication: GASTROOESOPHAGEAL REFLUX DISEASE
  17. POTASSIUM [Concomitant]
     Indication: MINERAL SUPPLEMENTATION
  18. HYDROCHLOROTHIAZIDE [Concomitant]
     Indication: OEDEMA

REACTIONS (2)
  - Injection site pain [Recovered/Resolved]
  - Nausea [Recovered/Resolved]
